FAERS Safety Report 9825339 (Version 1)
Quarter: 2013Q4

REPORT INFORMATION
  Report Type: Spontaneous
  Country: US (occurrence: None)
  Receive Date: 20131028
  Receipt Date: 20131028
  Transmission Date: 20140711
  Serious: Yes (Other)
  Sender: FDA-Public Use
  Company Number: 2013US001988

PATIENT
  Age: 47 Year
  Sex: Male
  Weight: 86 kg

DRUGS (5)
  1. ICLUSIG (PONATINIB) TABLET, 45MG [Suspect]
     Indication: ACUTE MYELOID LEUKAEMIA
     Route: 048
     Dates: start: 20130627
  2. CEFEPIME (CEFEPIME) [Concomitant]
  3. CLOTRIMAZOLE (CLOTRIMAZOLE) [Concomitant]
  4. COLACE [Concomitant]
  5. SENNA (SENNA) [Concomitant]

REACTIONS (1)
  - Vision blurred [None]
